FAERS Safety Report 9285737 (Version 1)
Quarter: 2013Q2

REPORT INFORMATION
  Report Type: Spontaneous
  Country: US (occurrence: None)
  Receive Date: 20130510
  Receipt Date: 20130510
  Transmission Date: 20140414
  Serious: Yes (Hospitalization)
  Sender: FDA-Public Use
  Company Number: None

PATIENT
  Age: 47 Year
  Sex: Male
  Weight: 79.38 kg

DRUGS (2)
  1. NALTREXONE [Suspect]
     Indication: DRUG DEPENDENCE
     Route: 030
     Dates: start: 20130102
  2. NALTREXONE [Suspect]
     Indication: PROPHYLAXIS
     Route: 030
     Dates: start: 20130102

REACTIONS (1)
  - Chest pain [None]
